FAERS Safety Report 12007761 (Version 2)
Quarter: 2016Q1

REPORT INFORMATION
  Report Type: Spontaneous
  Country: FI (occurrence: FI)
  Receive Date: 20160204
  Receipt Date: 20160212
  Transmission Date: 20160526
  Serious: No
  Sender: FDA-Public Use
  Company Number: FI-MUNDIPHARMA DS AND PHARMACOVIGILANCE-GBR-2016-0033777

PATIENT
  Age: 90 Year
  Sex: Female

DRUGS (1)
  1. NORSPAN 5 MCG/HR DEPOTLAASTARI [Suspect]
     Active Substance: BUPRENORPHINE
     Indication: ANALGESIC THERAPY
     Dosage: UNK
     Route: 062
     Dates: start: 20150528, end: 20160119

REACTIONS (4)
  - Application site erythema [Unknown]
  - Application site pustules [Unknown]
  - Application site swelling [Unknown]
  - Application site irritation [Unknown]

NARRATIVE: CASE EVENT DATE: 201601
